FAERS Safety Report 7451367-1 (Version None)
Quarter: 2011Q2

REPORT INFORMATION
  Report Type: 
  Country: None (occurrence: None)
  Receive Date: 20110502
  Receipt Date: 20110428
  Transmission Date: 20111010
  Serious: Yes (Hospitalization)
  Sender: FDA-Public Use
  Company Number: GB-SANOFI-AVENTIS-2011SA007405

PATIENT
  Age: 65 Year
  Sex: Female

DRUGS (3)
  1. OMEPRAZOLE [Concomitant]
  2. OXALIPLATIN [Suspect]
     Route: 041
     Dates: start: 20110112
  3. XELODA [Suspect]
     Route: 048
     Dates: start: 20110121, end: 20110122

REACTIONS (4)
  - COLITIS [None]
  - BLOOD ALBUMIN DECREASED [None]
  - NAUSEA [None]
  - VOMITING [None]
